FAERS Safety Report 18989475 (Version 1)
Quarter: 2021Q1

REPORT INFORMATION
  Report Type: Spontaneous
  Country: US (occurrence: US)
  Receive Date: 20210310
  Receipt Date: 20210310
  Transmission Date: 20210420
  Serious: No
  Sender: FDA-Public Use
  Company Number: US-ASTRAZENECA-2021A097071

PATIENT
  Age: 65 Year
  Sex: Male
  Weight: 117.9 kg

DRUGS (1)
  1. BYDUREON BCISE [Suspect]
     Active Substance: EXENATIDE
     Indication: BLOOD GLUCOSE FLUCTUATION
     Route: 058
     Dates: start: 2018

REACTIONS (5)
  - Injection site haemorrhage [Unknown]
  - Wrong technique in device usage process [Unknown]
  - Needle issue [Unknown]
  - Device malfunction [Unknown]
  - Product use issue [Unknown]

NARRATIVE: CASE EVENT DATE: 2018
